FAERS Safety Report 11912489 (Version 1)
Quarter: 2016Q1

REPORT INFORMATION
  Report Type: Spontaneous
  Country: CN (occurrence: CN)
  Receive Date: 20160113
  Receipt Date: 20160113
  Transmission Date: 20160526
  Serious: Yes (Hospitalization, Disabling)
  Sender: FDA-Public Use
  Company Number: CN-ROCHE-1692466

PATIENT
  Age: 1 Month
  Sex: Female
  Weight: 4.5 kg

DRUGS (3)
  1. ZINC GLUCONATE [Suspect]
     Active Substance: ZINC GLUCONATE
     Indication: PYREXIA
     Dosage: WITH IBUPROFEN GRANULES
     Route: 048
     Dates: start: 20150803, end: 20150803
  2. IBUPROFEN. [Suspect]
     Active Substance: IBUPROFEN
     Indication: PYREXIA
     Dosage: WITH COMPOUND ZINC GLUCONATE
     Route: 048
     Dates: start: 20150803, end: 20150803
  3. ROCEPHIN [Suspect]
     Active Substance: CEFTRIAXONE SODIUM
     Indication: UPPER RESPIRATORY TRACT INFECTION
     Route: 041
     Dates: start: 20150803, end: 20150811

REACTIONS (3)
  - Rash [Recovering/Resolving]
  - Liver injury [Unknown]
  - Pruritus [Unknown]

NARRATIVE: CASE EVENT DATE: 20150805
